FAERS Safety Report 13368156 (Version 1)
Quarter: 2017Q1

REPORT INFORMATION
  Report Type: Spontaneous
  Country: US (occurrence: US)
  Receive Date: 20170323
  Receipt Date: 20170323
  Transmission Date: 20170429
  Serious: Yes (Death)
  Sender: FDA-Public Use
  Company Number: None

PATIENT
  Age: 60 Year
  Sex: Female

DRUGS (4)
  1. MORPHINE [Concomitant]
     Active Substance: MORPHINE
  2. LASIX [Concomitant]
     Active Substance: FUROSEMIDE
  3. OCTREOTIDE 100 MCG PFS [Suspect]
     Active Substance: OCTREOTIDE ACETATE
     Indication: DIARRHOEA
     Dosage: TID AD NEEDED   UNDER THE SKIN
     Dates: start: 201611, end: 201703
  4. OCTREOTIDE 100 MCG PFS [Suspect]
     Active Substance: OCTREOTIDE ACETATE
     Indication: MUSCLE SPASMS
     Dosage: TID AD NEEDED   UNDER THE SKIN
     Dates: start: 201611, end: 201703

REACTIONS (1)
  - Cardio-respiratory arrest [None]

NARRATIVE: CASE EVENT DATE: 20170309
